FAERS Safety Report 9634053 (Version 1)
Quarter: 2013Q4

REPORT INFORMATION
  Report Type: Spontaneous
  Country: US (occurrence: US)
  Receive Date: 20131021
  Receipt Date: 20131021
  Transmission Date: 20140711
  Serious: Yes (Other)
  Sender: FDA-Public Use
  Company Number: US-MERCK-1310USA008317

PATIENT
  Age: 59 Year
  Sex: Female

DRUGS (1)
  1. ZETIA [Suspect]
     Dosage: UNK
     Route: 048

REACTIONS (1)
  - Lower limb fracture [Unknown]
